FAERS Safety Report 25886545 (Version 2)
Quarter: 2025Q4

REPORT INFORMATION
  Report Type: Spontaneous
  Country: CA (occurrence: CA)
  Receive Date: 20251006
  Receipt Date: 20251126
  Transmission Date: 20260118
  Serious: Yes (Life-Threatening)
  Sender: SANOFI AVENTIS
  Company Number: CA-SA-2025SA296875

PATIENT
  Age: 44 Year
  Sex: Female
  Weight: 74 kg

DRUGS (1)
  1. FERRLECIT [Suspect]
     Active Substance: SODIUM FERRIC GLUCONATE COMPLEX
     Indication: Anaemia
     Dosage: 125 MG, 1X
     Route: 042
     Dates: start: 20250502, end: 20250502

REACTIONS (10)
  - Loss of consciousness [Recovered/Resolved]
  - Respiratory disorder [Recovered/Resolved]
  - Chest discomfort [Not Recovered/Not Resolved]
  - Musculoskeletal stiffness [Recovered/Resolved]
  - Abdominal pain [Recovered/Resolved]
  - Arthralgia [Not Recovered/Not Resolved]
  - Chest pain [Recovered/Resolved]
  - Hypotension [Recovered/Resolved]
  - Myalgia [Not Recovered/Not Resolved]
  - Type I hypersensitivity [Not Recovered/Not Resolved]

NARRATIVE: CASE EVENT DATE: 20250502
